FAERS Safety Report 7619952-1 (Version None)
Quarter: 2011Q3

REPORT INFORMATION
  Report Type: 
  Country: None (occurrence: None)
  Receive Date: 20110719
  Receipt Date: 20110706
  Transmission Date: 20111222
  Serious: Yes (Hospitalization)
  Sender: FDA-Public Use
  Company Number: JP-JNJFOC-20100700830

PATIENT
  Sex: Male

DRUGS (10)
  1. EPZICOM [Suspect]
     Indication: HIV INFECTION
     Route: 048
     Dates: start: 20091229
  2. VIREAD [Concomitant]
     Indication: HIV INFECTION
     Route: 048
     Dates: start: 20041118, end: 20091228
  3. URSO 250 [Concomitant]
     Indication: LIVER DISORDER
     Route: 048
     Dates: start: 20090401
  4. ISENTRESS [Suspect]
     Indication: HIV INFECTION
     Route: 048
     Dates: start: 20091229
  5. PEGINTERFERON ALFA-2A [Concomitant]
     Indication: HEPATITIS
     Route: 065
     Dates: start: 20090401
  6. KALETRA [Concomitant]
     Indication: HIV INFECTION
     Route: 048
     Dates: start: 20050113, end: 20061031
  7. INTELENCE [Suspect]
     Indication: HIV INFECTION
     Route: 048
     Dates: start: 20091229
  8. KALETRA [Concomitant]
     Route: 048
     Dates: start: 20061101, end: 20091228
  9. EPIVIR [Concomitant]
     Indication: HIV INFECTION
     Route: 048
     Dates: start: 19990112, end: 20091228
  10. CROSS EIGHT M [Concomitant]
     Indication: FACTOR VIII DEFICIENCY
     Route: 065
     Dates: start: 20090401

REACTIONS (3)
  - HAEMORRHAGIC DIATHESIS [None]
  - LIVER DISORDER [None]
  - HYPERLIPIDAEMIA [None]
